FAERS Safety Report 5041516-7 (Version None)
Quarter: 2006Q2

REPORT INFORMATION
  Report Type: 
  Country: None (occurrence: None)
  Receive Date: 20060627
  Receipt Date: 20060619
  Transmission Date: 20061013
  Serious: Yes (Other)
  Sender: FDA-Public Use
  Company Number: 200612592BCC

PATIENT
  Age: 89 Year
  Sex: Female

DRUGS (1)
  1. MILK OF MAGNESIA TAB [Suspect]
     Dosage: 15-30 ML HS ORAL
     Route: 048

REACTIONS (2)
  - HAEMATOCHEZIA [None]
  - RENAL PAIN [None]
